FAERS Safety Report 20297868 (Version 2)
Quarter: 2022Q1

REPORT INFORMATION
  Report Type: Report from Study
  Country: EG (occurrence: EG)
  Receive Date: 20220105
  Receipt Date: 20220211
  Transmission Date: 20220423
  Serious: Yes (Other)
  Sender: FDA-Public Use
  Company Number: EG-NOVARTISPH-NVSC2021EG280106

PATIENT
  Age: 8 Year
  Sex: Female

DRUGS (5)
  1. OMNITROPE [Suspect]
     Active Substance: SOMATROPIN
     Indication: Off label use
     Dosage: 0.8 MG, QD
     Route: 058
     Dates: start: 20211126, end: 202201
  2. OMNITROPE [Suspect]
     Active Substance: SOMATROPIN
     Indication: Precocious puberty
  3. OMNITROPE [Suspect]
     Active Substance: SOMATROPIN
     Indication: Growth disorder
  4. ZOLADEX [Concomitant]
     Active Substance: GOSERELIN ACETATE
     Indication: Precocious puberty
     Dosage: 1 DOSAGE FORM, Q3MO
     Route: 065
     Dates: start: 20210816
  5. ZOLADEX [Concomitant]
     Active Substance: GOSERELIN ACETATE
     Dosage: 1 DOSAGE FORM, Q3MO
     Route: 065
     Dates: start: 20211116

REACTIONS (19)
  - Back pain [Not Recovered/Not Resolved]
  - Nervousness [Not Recovered/Not Resolved]
  - Irritability [Not Recovered/Not Resolved]
  - Pain in extremity [Not Recovered/Not Resolved]
  - Seizure [Not Recovered/Not Resolved]
  - Abdominal pain [Not Recovered/Not Resolved]
  - Renal pain [Not Recovered/Not Resolved]
  - Fatigue [Not Recovered/Not Resolved]
  - Skin discolouration [Not Recovered/Not Resolved]
  - Crying [Not Recovered/Not Resolved]
  - Nasopharyngitis [Not Recovered/Not Resolved]
  - Bone pain [Recovered/Resolved]
  - Injection site haemorrhage [Recovered/Resolved]
  - Product storage error [Recovered/Resolved]
  - Device issue [Recovered/Resolved]
  - Incorrect dose administered [Recovered/Resolved]
  - Wrong technique in product usage process [Recovered/Resolved]
  - Product dose omission issue [Recovered/Resolved]
  - Product use in unapproved indication [Recovered/Resolved]

NARRATIVE: CASE EVENT DATE: 20211126
